FAERS Safety Report 16514591 (Version 1)
Quarter: 2019Q3

REPORT INFORMATION
  Report Type: Spontaneous
  Country: US (occurrence: US)
  Receive Date: 20190521
  Receipt Date: 20190521
  Transmission Date: 20191004
  Serious: Yes (Death, Hospitalization)
  Sender: FDA-Public Use
  Company Number: None

PATIENT
  Age: 75 Year
  Weight: 57.3 kg

DRUGS (21)
  1. BENAZEPRIL HCL [Concomitant]
     Active Substance: BENAZEPRIL HYDROCHLORIDE
  2. MIRALAX [Concomitant]
     Active Substance: POLYETHYLENE GLYCOL 3350
  3. INH [Concomitant]
     Active Substance: ISONIAZID
  4. METHADONE HCL [Concomitant]
     Active Substance: METHADONE HYDROCHLORIDE
  5. ATEZOLIZUMAB. [Concomitant]
     Active Substance: ATEZOLIZUMAB
  6. ASPIRIN. [Concomitant]
     Active Substance: ASPIRIN
  7. CODEINE PHOSPHATE/GUAIFENESIN [Concomitant]
     Active Substance: CODEINE PHOSPHATE\GUAIFENESIN
  8. LEXAPRO [Concomitant]
     Active Substance: ESCITALOPRAM OXALATE
  9. LEVOTHYROXINE SODIUM. [Concomitant]
     Active Substance: LEVOTHYROXINE SODIUM
  10. APIXABAN, BLINDED 2.5 VS 5.0MG [Suspect]
     Active Substance: APIXABAN
     Indication: PULMONARY EMBOLISM
     Dosage: ?          OTHER DOSE:2.5 VS 5.0;?
     Route: 048
     Dates: end: 20180424
  11. LORAZEPAM. [Concomitant]
     Active Substance: LORAZEPAM
  12. MEGACE [Concomitant]
     Active Substance: MEGESTROL ACETATE
  13. ATORVASTATIN CALCIUM. [Concomitant]
     Active Substance: ATORVASTATIN CALCIUM
  14. BENADRYL [Concomitant]
     Active Substance: DIPHENHYDRAMINE HYDROCHLORIDE
  15. APIXABAN, BLINDED 2.5 VS 5.0MG [Suspect]
     Active Substance: APIXABAN
     Indication: DEEP VEIN THROMBOSIS
     Dosage: ?          OTHER DOSE:2.5 VS 5.0;?
     Route: 048
     Dates: end: 20180424
  16. PROAIR HFA [Concomitant]
     Active Substance: ALBUTEROL SULFATE
  17. TESSALON [Concomitant]
     Active Substance: BENZONATATE
  18. ALBUTEROL SULFATE. [Concomitant]
     Active Substance: ALBUTEROL SULFATE
     Dates: start: 201710
  19. AMLODIPINE BESYLATE. [Concomitant]
     Active Substance: AMLODIPINE BESYLATE
  20. BREO ELLIPTA INH [Concomitant]
  21. PROCHLORPERAZINE MALEATE. [Concomitant]
     Active Substance: PROCHLORPERAZINE MALEATE

REACTIONS (6)
  - Urinary retention [None]
  - Muscular weakness [None]
  - Malignant neoplasm progression [None]
  - Metastatic neoplasm [None]
  - Lung neoplasm malignant [None]
  - Ascites [None]

NARRATIVE: CASE EVENT DATE: 20180425
